FAERS Safety Report 5031950-3 (Version None)
Quarter: 2006Q2

REPORT INFORMATION
  Report Type: 
  Country: None (occurrence: None)
  Receive Date: 20060621
  Receipt Date: 20051123
  Transmission Date: 20061013
  Serious: No
  Sender: FDA-Public Use
  Company Number: US-AMGEN-US159027

PATIENT
  Sex: Male

DRUGS (27)
  1. ARANESP [Suspect]
     Indication: RENAL TRANSPLANT
     Route: 065
     Dates: start: 20030201
  2. MEDICINALPRODUCT NOT SPECIFIED BY SENDER [Concomitant]
  3. MEDICINALPRODUCT NOT SPECIFIED BY SENDER [Concomitant]
  4. MEDICINALPRODUCT NOT SPECIFIED BY SENDER [Concomitant]
  5. MEDICINALPRODUCT NOT SPECIFIED BY SENDER [Concomitant]
  6. MEDICINALPRODUCT NOT SPECIFIED BY SENDER [Concomitant]
  7. MEDICINALPRODUCT NOT SPECIFIED BY SENDER [Concomitant]
  8. MEDICINALPRODUCT NOT SPECIFIED BY SENDER [Concomitant]
  9. MEDICINALPRODUCT NOT SPECIFIED BY SENDER [Concomitant]
  10. MEDICINALPRODUCT NOT SPECIFIED BY SENDER [Concomitant]
  11. MEDICINALPRODUCT NOT SPECIFIED BY SENDER [Concomitant]
  12. MEDICINALPRODUCT NOT SPECIFIED BY SENDER [Concomitant]
  13. MEDICINALPRODUCT NOT SPECIFIED BY SENDER [Concomitant]
  14. MEDICINALPRODUCT NOT SPECIFIED BY SENDER [Concomitant]
  15. MEDICINALPRODUCT NOT SPECIFIED BY SENDER [Concomitant]
  16. MEDICINALPRODUCT NOT SPECIFIED BY SENDER [Concomitant]
  17. MEDICINALPRODUCT NOT SPECIFIED BY SENDER [Concomitant]
  18. MEDICINALPRODUCT NOT SPECIFIED BY SENDER [Concomitant]
  19. SENSIPAR [Concomitant]
  20. MEDICINALPRODUCT NOT SPECIFIED BY SENDER [Concomitant]
  21. MEDICINALPRODUCT NOT SPECIFIED BY SENDER [Concomitant]
  22. MEDICINALPRODUCT NOT SPECIFIED BY SENDER [Concomitant]
  23. MEDICINALPRODUCT NOT SPECIFIED BY SENDER [Concomitant]
     Route: 042
  24. MEDICINALPRODUCT NOT SPECIFIED BY SENDER [Concomitant]
  25. MEDICINALPRODUCT NOT SPECIFIED BY SENDER [Concomitant]
  26. MEDICINALPRODUCT NOT SPECIFIED BY SENDER [Concomitant]
  27. MEDICINALPRODUCT NOT SPECIFIED BY SENDER [Concomitant]

REACTIONS (1)
  - THERAPEUTIC RESPONSE DECREASED [None]
